FAERS Safety Report 10958775 (Version 1)
Quarter: 2015Q1

REPORT INFORMATION
  Report Type: Spontaneous
  Country: US (occurrence: US)
  Receive Date: 20150326
  Receipt Date: 20150326
  Transmission Date: 20150721
  Serious: Yes (Other)
  Sender: FDA-Public Use
  Company Number: US-TEVA-549866USA

PATIENT
  Sex: Female

DRUGS (3)
  1. SEROQUEL XR [Suspect]
     Active Substance: QUETIAPINE FUMARATE
     Route: 065
  2. SEROQUEL [Suspect]
     Active Substance: QUETIAPINE FUMARATE
     Route: 065
  3. QUETIAPINE FUMARATE. [Suspect]
     Active Substance: QUETIAPINE FUMARATE
     Route: 065

REACTIONS (22)
  - Mental disorder [Unknown]
  - Mood swings [Unknown]
  - Depression [Unknown]
  - Weight increased [Unknown]
  - Gastrointestinal haemorrhage [Unknown]
  - Gastritis [Unknown]
  - Duodenitis [Unknown]
  - Eating disorder [Unknown]
  - Crying [Unknown]
  - Hyperlipidaemia [Unknown]
  - Anxiety [Unknown]
  - Irritability [Unknown]
  - Blood cholesterol increased [Unknown]
  - Agitation [Unknown]
  - Gastrointestinal disorder [Unknown]
  - Panic attack [Unknown]
  - Abdominal distension [Unknown]
  - Weight loss poor [Unknown]
  - Insomnia [Unknown]
  - Abdominal pain [Unknown]
  - Bipolar disorder [Unknown]
  - Activities of daily living impaired [Unknown]
